FAERS Safety Report 21892115 (Version 2)
Quarter: 2023Q2

REPORT INFORMATION
  Report Type: Report from Study
  Country: CO (occurrence: CO)
  Receive Date: 20230120
  Receipt Date: 20230616
  Transmission Date: 20230722
  Serious: Yes (Death, Hospitalization, Other)
  Sender: FDA-Public Use
  Company Number: CO-ABBVIE-4277490

PATIENT
  Age: 54 Year
  Sex: Male
  Weight: 59 kg

DRUGS (1)
  1. ZEMPLAR [Suspect]
     Active Substance: PARICALCITOL
     Indication: Chronic kidney disease
     Route: 042
     Dates: start: 20200914, end: 20221223

REACTIONS (6)
  - Death [Fatal]
  - Wound complication [Recovering/Resolving]
  - Sepsis [Recovering/Resolving]
  - Device related infection [Recovering/Resolving]
  - Boredom [Not Recovered/Not Resolved]
  - Hunger [Not Recovered/Not Resolved]

NARRATIVE: CASE EVENT DATE: 20220828
